FAERS Safety Report 11761604 (Version 1)
Quarter: 2015Q4

REPORT INFORMATION
  Report Type: Spontaneous
  Country: US (occurrence: US)
  Receive Date: 20151120
  Receipt Date: 20151120
  Transmission Date: 20160304
  Serious: Yes (Other)
  Sender: FDA-Public Use
  Company Number: US-ELI_LILLY_AND_COMPANY-US201511005634

PATIENT
  Sex: Female

DRUGS (3)
  1. LANTUS [Concomitant]
     Active Substance: INSULIN GLARGINE
  2. HUMALOG [Suspect]
     Active Substance: INSULIN LISPRO
     Indication: TYPE 2 DIABETES MELLITUS
     Dosage: 60 U, UNKNOWN
     Route: 065
     Dates: start: 2010
  3. HUMALOG [Suspect]
     Active Substance: INSULIN LISPRO

REACTIONS (3)
  - Weight decreased [Unknown]
  - Blood glucose increased [Recovering/Resolving]
  - Chronic kidney disease [Unknown]
